FAERS Safety Report 14045045 (Version 2)
Quarter: 2017Q4

REPORT INFORMATION
  Report Type: Spontaneous
  Country: US (occurrence: US)
  Receive Date: 20171005
  Receipt Date: 20171018
  Transmission Date: 20180321
  Serious: No
  Sender: FDA-Public Use
  Company Number: US-AMGEN-USASP2017148783

PATIENT
  Age: 67 Year
  Sex: Female

DRUGS (2)
  1. METHOTREXATE. [Concomitant]
     Active Substance: METHOTREXATE
     Indication: RHEUMATOID ARTHRITIS
     Dosage: UNK
  2. ENBREL [Suspect]
     Active Substance: ETANERCEPT
     Indication: RHEUMATOID ARTHRITIS
     Dosage: 50 MG, QWK
     Route: 065
     Dates: start: 20170910

REACTIONS (7)
  - Drug hypersensitivity [Unknown]
  - Chest discomfort [Recovered/Resolved]
  - Peripheral swelling [Unknown]
  - Pollakiuria [Unknown]
  - Injection site erythema [Unknown]
  - Dehydration [Unknown]
  - Injection site induration [Unknown]

NARRATIVE: CASE EVENT DATE: 2017
